FAERS Safety Report 9250821 (Version 2)
Quarter: 2014Q2

REPORT INFORMATION
  Report Type: Report from Study
  Country: DE (occurrence: DE)
  Receive Date: 20130424
  Receipt Date: 20140623
  Transmission Date: 20141212
  Serious: Yes (Death)
  Sender: FDA-Public Use
  Company Number: DE-SANOFI-AVENTIS-2013SA041881

PATIENT
  Age: 86 Year
  Sex: Male

DRUGS (10)
  1. CIPROFLOXACIN SALT NOT SPECIFIED [Suspect]
     Indication: PRODUCT USED FOR UNKNOWN INDICATION
     Route: 065
  2. DICLOFENAC SODIUM [Suspect]
     Indication: PRODUCT USED FOR UNKNOWN INDICATION
     Route: 065
  3. HEPARIN (SALT NOT SPECIFIED) [Suspect]
     Indication: PRODUCT USED FOR UNKNOWN INDICATION
     Route: 065
  4. CLONAZEPAM [Suspect]
     Indication: PRODUCT USED FOR UNKNOWN INDICATION
     Route: 065
  5. OMEPRAZOLE [Suspect]
     Indication: PRODUCT USED FOR UNKNOWN INDICATION
     Route: 065
  6. CLOPIDOGREL BISULFATE [Suspect]
     Indication: PRODUCT USED FOR UNKNOWN INDICATION
     Route: 065
  7. FUROSEMIDE [Suspect]
     Indication: PRODUCT USED FOR UNKNOWN INDICATION
     Route: 065
  8. VALPROIC ACID [Suspect]
     Indication: PARTIAL SEIZURES
     Route: 065
  9. VALPROIC ACID [Suspect]
     Indication: PARTIAL SEIZURES
     Route: 065
  10. L-DOPA [Suspect]
     Indication: PRODUCT USED FOR UNKNOWN INDICATION
     Route: 065

REACTIONS (1)
  - Hepatic failure [Fatal]
